FAERS Safety Report 14941319 (Version 1)
Quarter: 2018Q2

REPORT INFORMATION
  Report Type: Report from Study
  Country: CA (occurrence: CA)
  Receive Date: 20180526
  Receipt Date: 20180526
  Transmission Date: 20180711
  Serious: Yes (Death, Other)
  Sender: FDA-Public Use
  Company Number: CA-AMGEN-CANSL2018071949

PATIENT
  Age: 58 Year
  Sex: Male

DRUGS (1)
  1. KYPROLIS [Suspect]
     Active Substance: CARFILZOMIB
     Indication: PLASMA CELL MYELOMA
     Dosage: 56 MG/M2, (2 TIMES A WEEK)
     Route: 065
     Dates: start: 20180504

REACTIONS (1)
  - Death [Fatal]

NARRATIVE: CASE EVENT DATE: 20180522
